FAERS Safety Report 14962179 (Version 1)
Quarter: 2018Q2

REPORT INFORMATION
  Report Type: Spontaneous
  Country: US (occurrence: US)
  Receive Date: 20180601
  Receipt Date: 20180601
  Transmission Date: 20180711
  Serious: No
  Sender: FDA-Public Use
  Company Number: US-MALLINCKRODT-T201702045

PATIENT
  Age: 39 Year
  Sex: Male

DRUGS (1)
  1. METHYLPHENIDATE HYDROCHLORIDE EXTENDED RELEASE TABLETS [Suspect]
     Active Substance: METHYLPHENIDATE HYDROCHLORIDE
     Indication: PRODUCT USED FOR UNKNOWN INDICATION
     Dosage: 36 MG, UNK
     Route: 065

REACTIONS (9)
  - Product substitution issue [Unknown]
  - Temperature intolerance [Unknown]
  - Drug dependence [Unknown]
  - Hostility [Unknown]
  - Feeling of despair [Unknown]
  - Irritability [Unknown]
  - Aggression [Unknown]
  - Dizziness [Unknown]
  - Fatigue [Unknown]
